FAERS Safety Report 24703259 (Version 1)
Quarter: 2024Q4

REPORT INFORMATION
  Report Type: Spontaneous
  Country: FR (occurrence: FR)
  Receive Date: 20241205
  Receipt Date: 20241205
  Transmission Date: 20250115
  Serious: Yes (Other)
  Sender: PURDUE
  Company Number: FR-PURDUE-USA-2024-0313750

PATIENT
  Age: 21 Year
  Sex: Male

DRUGS (11)
  1. MORPHINE SULFATE [Suspect]
     Active Substance: MORPHINE SULFATE
     Indication: Pain
     Dosage: 2 MILLIGRAM
     Route: 042
     Dates: start: 20240921, end: 20240921
  2. MORPHINE SULFATE [Suspect]
     Active Substance: MORPHINE SULFATE
     Dosage: 10 MILLIGRAM, Q8H
     Route: 048
     Dates: start: 20240924, end: 20240926
  3. ACETAMINOPHEN [Suspect]
     Active Substance: ACETAMINOPHEN
     Indication: Pain
     Dosage: 1 GRAM, Q6H
     Route: 042
     Dates: start: 20240921, end: 20240923
  4. ACETAMINOPHEN [Suspect]
     Active Substance: ACETAMINOPHEN
     Dosage: 1 GRAM, Q6H
     Route: 048
     Dates: start: 20240923, end: 20240925
  5. KETOPROFEN [Suspect]
     Active Substance: KETOPROFEN
     Indication: Pain
     Dosage: 100 MILLIGRAM, Q8H
     Route: 048
     Dates: start: 20240921, end: 20240924
  6. NEFOPAM HYDROCHLORIDE [Suspect]
     Active Substance: NEFOPAM HYDROCHLORIDE
     Indication: Pain
     Dosage: 120 MILLIGRAM
     Route: 042
     Dates: start: 20240921, end: 20240925
  7. POLYETHYLENE GLYCOLS [Suspect]
     Active Substance: POLYETHYLENE GLYCOLS
     Indication: Pain
     Dosage: 2 DOSAGE FORM, DAILY
     Route: 048
     Dates: start: 20240921, end: 20240924
  8. PHLOROGLUCINOL [Suspect]
     Active Substance: PHLOROGLUCINOL
     Indication: Pain
     Dosage: 80 MILLIGRAM, Q8H
     Route: 048
     Dates: start: 20240923, end: 20240925
  9. ONDANSETRON [Concomitant]
     Active Substance: ONDANSETRON
     Indication: Pain
     Dosage: 4 MILLIGRAM, Q6H
     Route: 042
     Dates: start: 20240921
  10. DROPERIDOL [Concomitant]
     Active Substance: DROPERIDOL
     Indication: Product used for unknown indication
     Dosage: UNK
     Route: 042
     Dates: start: 20240921
  11. ENOXAPARIN SODIUM [Concomitant]
     Active Substance: ENOXAPARIN SODIUM
     Indication: Product used for unknown indication
     Dosage: UNK
     Route: 065

REACTIONS (1)
  - Hepatic cytolysis [Recovered/Resolved]

NARRATIVE: CASE EVENT DATE: 20240925
